FAERS Safety Report 9516605 (Version 2)
Quarter: 2013Q4

REPORT INFORMATION
  Report Type: Spontaneous
  Country: US (occurrence: US)
  Receive Date: 20130911
  Receipt Date: 20131004
  Transmission Date: 20140711
  Serious: Yes (Disabling, Other)
  Sender: FDA-Public Use
  Company Number: US-GLAXOSMITHKLINE-A1040443A

PATIENT
  Sex: Male

DRUGS (2)
  1. MALARONE [Suspect]
     Indication: MALARIA PROPHYLAXIS
     Route: 048
     Dates: start: 2008
  2. NO CONCURRENT MEDICATION [Concomitant]

REACTIONS (3)
  - Ototoxicity [Recovering/Resolving]
  - Inner ear disorder [Recovering/Resolving]
  - Oscillopsia [Recovering/Resolving]
